FAERS Safety Report 4652345-8 (Version None)
Quarter: 2005Q2

REPORT INFORMATION
  Report Type: 
  Country: None (occurrence: None)
  Receive Date: 20050504
  Receipt Date: 20050426
  Transmission Date: 20051028
  Serious: Yes (Other)
  Sender: FDA-Public Use
  Company Number: GB-GLAXOSMITHKLINE-B0379247A

PATIENT
  Age: 60 Year
  Sex: Male

DRUGS (2)
  1. REQUIP [Suspect]
     Route: 048
  2. FRUSEMIDE [Concomitant]
     Route: 065

REACTIONS (3)
  - HALLUCINATION [None]
  - MENTAL DISORDER [None]
  - OEDEMA PERIPHERAL [None]
